FAERS Safety Report 21033750 (Version 3)
Quarter: 2022Q4

REPORT INFORMATION
  Report Type: Report from Study
  Country: GB (occurrence: GB)
  Receive Date: 20220701
  Receipt Date: 20221018
  Transmission Date: 20230113
  Serious: Yes (Other)
  Sender: FDA-Public Use
  Company Number: GB-BRISTOL-MYERS SQUIBB COMPANY-2022-048197

PATIENT
  Age: 76 Year
  Sex: Female

DRUGS (2)
  1. ORENCIA [Suspect]
     Active Substance: ABATACEPT
     Indication: Rheumatoid arthritis
     Dosage: WEEKLY
     Route: 058
     Dates: start: 20181102
  2. COVID-19 VACCINE [Concomitant]
     Indication: COVID-19 immunisation
     Route: 065

REACTIONS (6)
  - Gastric ulcer [Unknown]
  - Colitis [Unknown]
  - Hypoacusis [Unknown]
  - Drug ineffective [Unknown]
  - Intentional product use issue [Unknown]
  - Adverse event [Unknown]
